APPROVED DRUG PRODUCT: ENTADFI
Active Ingredient: FINASTERIDE; TADALAFIL
Strength: 5MG;5MG
Dosage Form/Route: CAPSULE;ORAL
Application: N215423 | Product #001
Applicant: BLUE WATER BIOTECH INC
Approved: Dec 9, 2021 | RLD: Yes | RS: No | Type: DISCN